FAERS Safety Report 22636146 (Version 1)
Quarter: 2023Q2

REPORT INFORMATION
  Report Type: Spontaneous
  Country: JP (occurrence: JP)
  Receive Date: 20230623
  Receipt Date: 20230623
  Transmission Date: 20230721
  Serious: Yes (Hospitalization)
  Sender: FDA-Public Use
  Company Number: JP-002147023-NVSC2023JP142522

PATIENT
  Age: 82 Year
  Sex: Female
  Weight: 68 kg

DRUGS (5)
  1. FLUMAZENIL [Suspect]
     Active Substance: FLUMAZENIL
     Indication: Product used for unknown indication
     Dosage: 0.2 MG (EVERY 5 MINUTES)
     Route: 065
  2. FLUMAZENIL [Suspect]
     Active Substance: FLUMAZENIL
     Dosage: 0.2 MG (EVERY 5 MINUTES)
     Route: 065
  3. FLUMAZENIL [Suspect]
     Active Substance: FLUMAZENIL
     Dosage: 0.2 MG (EVERY 5 MINUTES)
     Route: 065
  4. FLUMAZENIL [Suspect]
     Active Substance: FLUMAZENIL
     Dosage: 0.2 MG (EVERY 5 MINUTES)
     Route: 065
  5. FLUMAZENIL [Suspect]
     Active Substance: FLUMAZENIL
     Dosage: 0.2 MG (EVERY 5 MINUTES)
     Route: 065

REACTIONS (1)
  - Cardiac failure [Recovering/Resolving]
